FAERS Safety Report 8358479-9 (Version None)
Quarter: 2012Q2

REPORT INFORMATION
  Report Type: 
  Country: None (occurrence: None)
  Receive Date: 20120514
  Receipt Date: 20120507
  Transmission Date: 20120825
  Serious: Yes (Hospitalization)
  Sender: FDA-Public Use
  Company Number: US-BAYER-2011-081743

PATIENT
  Age: 27 Year
  Sex: Female

DRUGS (6)
  1. ALBUTEROL [Concomitant]
     Indication: ASTHMA
     Route: 042
  2. CALCIUM CARBONATE [Concomitant]
     Dosage: 125 MG, QD
     Route: 048
  3. YASMIN [Suspect]
     Indication: DYSFUNCTIONAL UTERINE BLEEDING
     Dosage: UNK
     Dates: start: 20030501, end: 20080901
  4. PROVENTIL [Concomitant]
     Indication: ASTHMA
     Dosage: UNK UNK, PRN
     Route: 045
     Dates: start: 20080924
  5. YASMIN [Suspect]
     Indication: MENORRHAGIA
  6. IRON [Concomitant]
     Indication: ANAEMIA
     Dosage: UNK
     Dates: start: 20080924

REACTIONS (6)
  - PULMONARY EMBOLISM [None]
  - ANXIETY [None]
  - INJURY [None]
  - PAIN [None]
  - GENERAL PHYSICAL HEALTH DETERIORATION [None]
  - EMOTIONAL DISTRESS [None]
